FAERS Safety Report 12769868 (Version 1)
Quarter: 2016Q3

REPORT INFORMATION
  Report Type: Report from Study
  Country: US (occurrence: US)
  Receive Date: 20160922
  Receipt Date: 20160922
  Transmission Date: 20161109
  Serious: Yes (Other)
  Sender: FDA-Public Use
  Company Number: US-AMGEN-USASL2016126747

PATIENT
  Age: 55 Year
  Sex: Male

DRUGS (1)
  1. REPATHA [Suspect]
     Active Substance: EVOLOCUMAB
     Indication: BLOOD CHOLESTEROL INCREASED
     Dosage: 140 MG, ONCE EVERY 15 DAYS
     Route: 065

REACTIONS (4)
  - Fatigue [Unknown]
  - Angina pectoris [Recovered/Resolved]
  - Bladder cancer [Recovered/Resolved]
  - Chest pain [Recovered/Resolved]
